FAERS Safety Report 5248599-X (Version None)
Quarter: 2007Q1

REPORT INFORMATION
  Report Type: 
  Country: None (occurrence: None)
  Receive Date: 20070222
  Receipt Date: 20070208
  Transmission Date: 20070707
  Serious: Yes (Hospitalization, Other)
  Sender: FDA-Public Use
  Company Number: PHFR2007GB00746

PATIENT
  Sex: Male

DRUGS (7)
  1. THIORIDAZINE HCL [Suspect]
  2. DIAZEPAM [Suspect]
  3. WARFARIN SODIUM [Suspect]
  4. SEROXAT ^SMITHKLINE BEECHAM^(PAROXETINE HYDROCHLORIDE) [Suspect]
     Dates: start: 19990101
  5. ALCOHOL(ETHANOL) [Suspect]
  6. SODIUM SALICYLATE ECT [Suspect]
  7. DEPAKOTE [Concomitant]

REACTIONS (7)
  - AGGRESSION [None]
  - ALCOHOLISM [None]
  - DRUG WITHDRAWAL SYNDROME [None]
  - MULTIPLE DRUG OVERDOSE [None]
  - PARTNER STRESS [None]
  - SUICIDE ATTEMPT [None]
  - TREATMENT NONCOMPLIANCE [None]
